FAERS Safety Report 8653111 (Version 2)
Quarter: 2013Q2

REPORT INFORMATION
  Report Type: Spontaneous
  Country: US (occurrence: US)
  Receive Date: 20120706
  Receipt Date: 20130612
  Transmission Date: 20140414
  Serious: Yes (Other)
  Sender: FDA-Public Use
  Company Number: US-ASTRAZENECA-2012SE42534

PATIENT
  Age: 56 Year
  Sex: Female
  Weight: 111.1 kg

DRUGS (10)
  1. SYMBICORT PMDI [Suspect]
     Indication: CHRONIC OBSTRUCTIVE PULMONARY DISEASE
     Dosage: 80, 4.5, 2 PUFFS BID
     Route: 055
  2. SYMBICORT PMDI [Suspect]
     Indication: CHRONIC OBSTRUCTIVE PULMONARY DISEASE
     Dosage: 80 MCG, 2 PUFFS BID
     Route: 055
  3. ATENOLOL [Suspect]
     Indication: CARDIAC DISORDER
     Route: 048
  4. LISINOPRIL [Suspect]
     Indication: CARDIAC DISORDER
     Dosage: 20, 12.5 MG DAILY
     Route: 048
  5. MAGNESIUM OXIDE [Concomitant]
     Indication: CARDIAC DISORDER
  6. BAYER ASPIRIN [Concomitant]
     Indication: CARDIAC DISORDER
  7. LASIX [Concomitant]
     Indication: CARDIAC DISORDER
  8. ISOSORBIDE [Concomitant]
     Indication: CARDIAC DISORDER
  9. KLORCON [Concomitant]
     Indication: CARDIAC DISORDER
  10. PRAVASTATIN SODIUM [Concomitant]
     Indication: CARDIAC DISORDER

REACTIONS (5)
  - Myocardial infarction [Unknown]
  - Dyspnoea [Unknown]
  - Weight increased [Unknown]
  - Drug dose omission [Unknown]
  - Intentional drug misuse [Unknown]
